FAERS Safety Report 10196544 (Version 1)
Quarter: 2014Q2

REPORT INFORMATION
  Report Type: Spontaneous
  Country: FR (occurrence: FR)
  Receive Date: 20140527
  Receipt Date: 20140527
  Transmission Date: 20141212
  Serious: Yes (Life-Threatening, Hospitalization)
  Sender: FDA-Public Use
  Company Number: FR-BAYER-2014-076426

PATIENT
  Age: 68 Year
  Sex: Female

DRUGS (3)
  1. ULTRAVIST 370 [Suspect]
     Indication: COMPUTERISED TOMOGRAM
     Dosage: UNK UNK, ONCE
     Route: 042
     Dates: start: 20140331, end: 20140331
  2. ACTILYSE [Suspect]
     Dosage: UNK
     Route: 042
     Dates: start: 20140331, end: 20140331
  3. LOXEN [Suspect]
     Dosage: UNK
     Route: 042
     Dates: start: 20140331, end: 20140331

REACTIONS (1)
  - Face oedema [Recovered/Resolved]
